FAERS Safety Report 8438373-5 (Version None)
Quarter: 2012Q2

REPORT INFORMATION
  Report Type: 
  Country: None (occurrence: None)
  Receive Date: 20120614
  Receipt Date: 20120608
  Transmission Date: 20120825
  Serious: Yes (Disabling, Other)
  Sender: FDA-Public Use
  Company Number: US-MERCK-1205USA02604

PATIENT
  Age: 43 Year
  Sex: Male
  Weight: 80 kg

DRUGS (2)
  1. ZETIA [Suspect]
     Indication: LIPIDS INCREASED
     Route: 048
     Dates: start: 20070401, end: 20120514
  2. VALTREX [Concomitant]
     Route: 065

REACTIONS (1)
  - UVEITIS [None]
